FAERS Safety Report 6550145-5 (Version None)
Quarter: 2010Q1

REPORT INFORMATION
  Report Type: 
  Country: None (occurrence: None)
  Receive Date: 20100119
  Receipt Date: 20100107
  Transmission Date: 20100710
  Serious: Yes (Other)
  Sender: FDA-Public Use
  Company Number: 2010AL000144

PATIENT
  Age: 34 Year
  Sex: Female

DRUGS (3)
  1. DIAZEPAM [Suspect]
     Indication: AGITATION
     Dosage: 2 MG;QD;PO
     Route: 048
  2. ABILIFY [Concomitant]
  3. VERAPAMIL [Concomitant]

REACTIONS (2)
  - ELECTROCARDIOGRAM QT PROLONGED [None]
  - TACHYCARDIA [None]
